FAERS Safety Report 7374993-7 (Version None)
Quarter: 2011Q1

REPORT INFORMATION
  Report Type: 
  Country: None (occurrence: None)
  Receive Date: 20110325
  Receipt Date: 20110321
  Transmission Date: 20110831
  Serious: Yes (Death, Hospitalization)
  Sender: FDA-Public Use
  Company Number: PHHY2011VE23033

PATIENT
  Sex: Female

DRUGS (2)
  1. DAFLON [Concomitant]
     Dosage: UNK
  2. DIOVAN [Suspect]
     Indication: HYPERTENSION
     Dosage: 160 MG, UNK
     Route: 048

REACTIONS (3)
  - MYOCARDIAL INFARCTION [None]
  - RENAL FAILURE [None]
  - GENERAL PHYSICAL HEALTH DETERIORATION [None]
